FAERS Safety Report 18480027 (Version 1)
Quarter: 2020Q4

REPORT INFORMATION
  Report Type: Spontaneous
  Country: US (occurrence: US)
  Receive Date: 20201108
  Receipt Date: 20201108
  Transmission Date: 20210114
  Serious: Yes (Other)
  Sender: FDA-Public Use
  Company Number: None

PATIENT
  Age: 92 Year
  Sex: Female

DRUGS (14)
  1. DONEPEZIL 23MG [Concomitant]
     Dates: start: 20190612, end: 20201108
  2. JANTOVEN [Suspect]
     Active Substance: WARFARIN SODIUM
     Indication: ATRIAL FIBRILLATION
     Route: 048
     Dates: start: 20190219, end: 20201108
  3. ROSUVASTATIN 10MG [Concomitant]
     Active Substance: ROSUVASTATIN
     Dates: start: 20190225, end: 20201108
  4. AMLODIPINE 2.5 [Concomitant]
     Dates: start: 20190314, end: 20201108
  5. MEMANTINE 5MG [Concomitant]
     Dates: start: 20190208, end: 20201108
  6. AMANTADINE 100MG [Concomitant]
     Active Substance: AMANTADINE
     Dates: start: 20190225, end: 20201108
  7. MELOXICAM 7.5MG [Concomitant]
     Active Substance: MELOXICAM
     Dates: start: 20190131, end: 20201108
  8. LEVOTHYROXINE 75MCG [Concomitant]
     Active Substance: LEVOTHYROXINE
     Dates: start: 20190225, end: 20201108
  9. CARVEDILOL 12.5MG [Concomitant]
     Active Substance: CARVEDILOL
     Dates: start: 20190101, end: 20201108
  10. MONTELUKAST [Concomitant]
     Active Substance: MONTELUKAST SODIUM
     Dates: start: 20200310, end: 20201108
  11. ISOSORBIDE MONONITRATE. [Concomitant]
     Active Substance: ISOSORBIDE MONONITRATE
     Dates: start: 20190909, end: 20201108
  12. FUROSEMIDE 80MG [Concomitant]
     Dates: start: 20191014, end: 20201108
  13. PANTOPRAZOLE 40MG [Concomitant]
     Active Substance: PANTOPRAZOLE SODIUM
     Dates: start: 20190218, end: 20201108
  14. SYMBICORT 160-4.5 [Concomitant]
     Dates: start: 20190208, end: 20201108

REACTIONS (2)
  - Therapeutic product effect decreased [None]
  - Therapy change [None]

NARRATIVE: CASE EVENT DATE: 20200801
